FAERS Safety Report 6900179-3 (Version None)
Quarter: 2010Q3

REPORT INFORMATION
  Report Type: 
  Country: None (occurrence: None)
  Receive Date: 20100803
  Receipt Date: 20100721
  Transmission Date: 20110219
  Serious: Yes (Life-Threatening, Hospitalization, Disabling, Other)
  Sender: FDA-Public Use
  Company Number: US-ELI_LILLY_AND_COMPANY-USA040876949

PATIENT
  Sex: Female

DRUGS (7)
  1. ZYPREXA [Suspect]
     Indication: BIPOLAR DISORDER
     Dosage: UNK, UNKNOWN
  2. CELEXA [Concomitant]
     Dosage: UNK, UNKNOWN
  3. DEPAKOTE [Concomitant]
     Dosage: UNK, UNKNOWN
  4. WELLBUTRIN [Concomitant]
     Dosage: UNK, UNKNOWN
  5. SYNTHROID [Concomitant]
     Dosage: UNK, UNKNOWN
  6. BUSPIRONE HCL [Concomitant]
     Dosage: UNK, UNKNOWN
  7. GEODON [Concomitant]
     Dates: end: 20101220

REACTIONS (7)
  - CARDIAC ARREST [None]
  - COMA [None]
  - DIZZINESS [None]
  - HALLUCINATION [None]
  - HYPOXIC-ISCHAEMIC ENCEPHALOPATHY [None]
  - NAUSEA [None]
  - RESPIRATORY ARREST [None]
